FAERS Safety Report 21340839 (Version 1)
Quarter: 2022Q3

REPORT INFORMATION
  Report Type: Spontaneous
  Country: US (occurrence: US)
  Receive Date: 20220916
  Receipt Date: 20220916
  Transmission Date: 20221027
  Serious: No
  Sender: FDA-Public Use
  Company Number: US-ADVANZ PHARMA-202209005651

PATIENT

DRUGS (1)
  1. HYDROXYCHLOROQUINE [Suspect]
     Active Substance: HYDROXYCHLOROQUINE
     Dosage: PLAQUENIL
     Dates: start: 2019

REACTIONS (3)
  - Hypokinesia [Unknown]
  - Antinuclear antibody increased [Unknown]
  - Therapy non-responder [Unknown]
